FAERS Safety Report 9645003 (Version 1)
Quarter: 2013Q4

REPORT INFORMATION
  Report Type: Spontaneous
  Country: US (occurrence: US)
  Receive Date: 20131025
  Receipt Date: 20131025
  Transmission Date: 20140711
  Serious: No
  Sender: FDA-Public Use
  Company Number: US-PFIZER INC-2013303333

PATIENT
  Age: 78 Year
  Sex: Male
  Weight: 94.79 kg

DRUGS (1)
  1. TIKOSYN [Suspect]
     Indication: ARRHYTHMIA
     Dosage: 250 UG, 2X/DAY
     Dates: start: 2013

REACTIONS (3)
  - Malaise [Unknown]
  - Dizziness [Unknown]
  - Ear disorder [Unknown]
